FAERS Safety Report 18695356 (Version 16)
Quarter: 2024Q2

REPORT INFORMATION
  Report Type: Spontaneous
  Country: US (occurrence: US)
  Receive Date: 20210104
  Receipt Date: 20240503
  Transmission Date: 20240716
  Serious: Yes (Other)
  Sender: FDA-Public Use
  Company Number: US-PFIZER INC-2019305268

PATIENT
  Age: 65 Year
  Sex: Female
  Weight: 52.16 kg

DRUGS (5)
  1. PREMARIN [Suspect]
     Active Substance: ESTROGENS, CONJUGATED
     Indication: Menopause
     Dosage: UNK (QUANTITY FOR 90 DAYS: 42 GRAMS)
     Route: 067
  2. PREMARIN [Suspect]
     Active Substance: ESTROGENS, CONJUGATED
     Indication: Atrophic vulvovaginitis
     Dosage: 0.5 MG, THREE TIMES A WEEK
     Route: 067
  3. PREMARIN [Suspect]
     Active Substance: ESTROGENS, CONJUGATED
     Dosage: 0.5 G, THREE TIMES WEEKLY
     Route: 067
     Dates: start: 20230515
  4. PREMARIN [Suspect]
     Active Substance: ESTROGENS, CONJUGATED
     Dosage: UNK, DAILY
  5. INSULIN NOS [Concomitant]
     Active Substance: INSULIN NOS
     Indication: Diabetes mellitus
     Dosage: UNK

REACTIONS (11)
  - Presbyacusis [Not Recovered/Not Resolved]
  - Tooth disorder [Unknown]
  - Intentional product misuse [Unknown]
  - Off label use [Unknown]
  - Product prescribing error [Unknown]
  - Tremor [Unknown]
  - Malaise [Unknown]
  - Sinus disorder [Unknown]
  - Enamel anomaly [Unknown]
  - Dental caries [Unknown]
  - Dry mouth [Unknown]

NARRATIVE: CASE EVENT DATE: 20210305
